FAERS Safety Report 16432058 (Version 9)
Quarter: 2021Q1

REPORT INFORMATION
  Report Type: Report from Study
  Country: US (occurrence: US)
  Receive Date: 20190614
  Receipt Date: 20210308
  Transmission Date: 20210419
  Serious: Yes (Hospitalization)
  Sender: FDA-Public Use
  Company Number: US-ROCHE-2335289

PATIENT
  Age: 51 Year
  Sex: Female
  Weight: 52.2 kg

DRUGS (20)
  1. PREDNISONE. [Suspect]
     Active Substance: PREDNISONE
     Indication: DIFFUSE LARGE B-CELL LYMPHOMA
     Dosage: ON DAYS 1?5 OF EVERY 21?DAY CYCLE FOR 6 CYCLES?LAST RECEIVED: 21/JUN/2019 (100 MG)?DATE OF MOST RECE
     Route: 048
     Dates: start: 20190530
  2. RBC TRANSFUSION [Concomitant]
     Route: 042
     Dates: start: 20190601, end: 20190601
  3. DOXORUBICIN [Suspect]
     Active Substance: DOXORUBICIN
     Indication: DIFFUSE LARGE B-CELL LYMPHOMA
     Dosage: MOST RECENT DOSE PRIOR TO THE SAE ONSET ON 31/MAY/2019?LAST RECEIVED: 19/JUN/2019 (77 MG)?DATE OF MO
     Route: 042
     Dates: start: 20190531
  4. CYCLOPHOSPHAMIDE. [Suspect]
     Active Substance: CYCLOPHOSPHAMIDE
     Indication: DIFFUSE LARGE B-CELL LYMPHOMA
     Dosage: MOST RECENT DOSE PRIOR TO THE SAE ONSET ON 31/MAY/2019?LAST RECEIVED: 19/JUN/2019 (1150 MG)?DATE OF
     Route: 042
     Dates: start: 20190531
  5. CYCLOBENZAPRINE. [Concomitant]
     Active Substance: CYCLOBENZAPRINE
     Indication: MUSCLE SPASMS
     Route: 048
     Dates: start: 20190509
  6. OLANZAPINE. [Concomitant]
     Active Substance: OLANZAPINE
     Indication: INSOMNIA
     Route: 048
     Dates: start: 20190613
  7. PLACEBO [Suspect]
     Active Substance: UNSPECIFIED INGREDIENT
     Indication: DIFFUSE LARGE B-CELL LYMPHOMA
     Dosage: MOST RECENT DOSE PRIOR TO SAE ONSET ON 31/MAY/2019?LAST RECEIVED: 19/JUN/2019
     Route: 042
     Dates: start: 20190531
  8. ONDANSETRON [Concomitant]
     Active Substance: ONDANSETRON
     Indication: NAUSEA
     Route: 048
     Dates: start: 20190521
  9. POLATUZUMAB VEDOTIN. [Suspect]
     Active Substance: POLATUZUMAB VEDOTIN
     Indication: DIFFUSE LARGE B-CELL LYMPHOMA
     Dosage: MOST RECENT DOSE (140 MG) PRIOR TO THE SAE ONSET ON 30/MAY/2019?LAST RECEIVED: 19/JUN/2019
     Route: 042
     Dates: start: 20190530
  10. RITUXIMAB. [Suspect]
     Active Substance: RITUXIMAB
     Indication: DIFFUSE LARGE B-CELL LYMPHOMA
     Dosage: MOST RECENT DOSE PRIOR TO THE SAE ONSET ON 31/MAY/2019?LAST RECEIVED: 19/JUN/2019 (574 MG)?DATE OF M
     Route: 042
     Dates: start: 20190531
  11. ALLOPURINOL. [Concomitant]
     Active Substance: ALLOPURINOL
     Indication: HYPERURICAEMIA
     Route: 048
     Dates: start: 20190524, end: 20190531
  12. NEULASTA [Concomitant]
     Active Substance: PEGFILGRASTIM
     Dosage: GRANULOCYTE?COLONY STIMULATING FACTOR
     Route: 058
     Dates: start: 20190709, end: 20190709
  13. PROCHLORPERAZINE. [Concomitant]
     Active Substance: PROCHLORPERAZINE
     Indication: NAUSEA
     Route: 048
     Dates: start: 20190521
  14. NEULASTA [Concomitant]
     Active Substance: PEGFILGRASTIM
     Indication: NEUTROPENIA
     Route: 058
     Dates: start: 20190601, end: 20190601
  15. PALONOSETRON. [Concomitant]
     Active Substance: PALONOSETRON HYDROCHLORIDE
     Route: 042
     Dates: start: 20190619, end: 20190619
  16. FOSAPREPITANT [Concomitant]
     Active Substance: FOSAPREPITANT
     Route: 042
     Dates: start: 20190619, end: 20190619
  17. RBC TRANSFUSION [Concomitant]
     Indication: ANAEMIA
     Route: 042
     Dates: start: 20190531, end: 20190531
  18. MAALOX ANTACID [Concomitant]
     Active Substance: ALUMINUM HYDROXIDE\DIMETHICONE\MAGNESIUM HYDROXIDE
     Indication: OESOPHAGEAL DISCOMFORT
     Dosage: 1 TBSP (TABLESPOON DOSING UNIT)
     Route: 048
     Dates: start: 20190418
  19. NEULASTA [Concomitant]
     Active Substance: PEGFILGRASTIM
     Dosage: GRANULOCYTE?COLONY STIMULATING FACTOR
     Route: 058
     Dates: start: 20190621, end: 20190621
  20. NEULASTA [Concomitant]
     Active Substance: PEGFILGRASTIM
     Dosage: GRANULOCYTE?COLONY STIMULATING FACTOR
     Route: 058
     Dates: start: 20190731, end: 20190731

REACTIONS (4)
  - Sepsis [Recovered/Resolved]
  - Intestinal perforation [Recovered/Resolved]
  - Colitis [Recovered/Resolved]
  - Bacteraemia [Recovered/Resolved]

NARRATIVE: CASE EVENT DATE: 20190608
